FAERS Safety Report 5624770-X (Version None)
Quarter: 2008Q1

REPORT INFORMATION
  Report Type: 
  Country: None (occurrence: None)
  Receive Date: 20080208
  Receipt Date: 20080125
  Transmission Date: 20080703
  Serious: Yes (Hospitalization)
  Sender: FDA-Public Use
  Company Number: 8029433

PATIENT
  Age: 72 Year
  Sex: Female

DRUGS (4)
  1. KEPPRA [Suspect]
  2. TEMODAR [Suspect]
     Indication: GLIOBLASTOMA MULTIFORME
     Dosage: PO
     Route: 048
     Dates: start: 20070227
  3. TEMODAR [Suspect]
     Indication: GLIOBLASTOMA MULTIFORME
     Dosage: 120 MG /D PO
     Route: 048
     Dates: start: 20070509, end: 20070530
  4. COMPAZINE [Suspect]

REACTIONS (5)
  - FATIGUE [None]
  - HYPOKALAEMIA [None]
  - MEMORY IMPAIRMENT [None]
  - NEUROPATHY PERIPHERAL [None]
  - WEIGHT DECREASED [None]
